FAERS Safety Report 4597387-6 (Version None)
Quarter: 2005Q1

REPORT INFORMATION
  Report Type: 
  Country: None (occurrence: None)
  Receive Date: 20050303
  Receipt Date: 20041116
  Transmission Date: 20050727
  Serious: No
  Sender: FDA-Public Use
  Company Number: US-GLAXOSMITHKLINE-A0534120A

PATIENT
  Age: 71 Year
  Sex: Female

DRUGS (5)
  1. REQUIP [Suspect]
     Indication: PARKINSON'S DISEASE
     Dosage: 3MG FOUR TIMES PER DAY
     Route: 048
     Dates: start: 20000101
  2. LAXATIVE [Concomitant]
  3. MULTI-VITAMIN [Concomitant]
  4. CALCIUM GLUCONATE [Concomitant]
  5. HORMONE [Concomitant]

REACTIONS (2)
  - DYSGEUSIA [None]
  - SALIVARY HYPERSECRETION [None]
